FAERS Safety Report 10495171 (Version 1)
Quarter: 2014Q4

REPORT INFORMATION
  Report Type: Spontaneous
  Country: US (occurrence: CA)
  Receive Date: 20141003
  Receipt Date: 20141003
  Transmission Date: 20150528
  Serious: Yes (Death)
  Sender: FDA-Public Use
  Company Number: CA-PFIZER INC-2014271684

PATIENT
  Age: 49 Year
  Sex: Female

DRUGS (6)
  1. NEO-SYNEPHRINE [Interacting]
     Active Substance: PHENYLEPHRINE HYDROCHLORIDE
     Dosage: 1 DROP OF 10% IN EACH EYE
     Route: 047
  2. INDERAL [Suspect]
     Active Substance: PROPRANOLOL HYDROCHLORIDE
     Indication: HYPERTENSION
     Dosage: 10 MG, 4X/DAY
  3. HYDROCHLOROTHIAZIDE. [Concomitant]
     Active Substance: HYDROCHLOROTHIAZIDE
     Dosage: 50 MG, 2X/DAY
  4. INDERAL [Interacting]
     Active Substance: PROPRANOLOL HYDROCHLORIDE
     Dosage: DOUBLED DOSE (WITHIN A MONTH)
  5. INDERAL [Interacting]
     Active Substance: PROPRANOLOL HYDROCHLORIDE
     Dosage: QUADRUPLED DOSE (3 MONTHS LATER)
  6. HYDROCHLOROTHIAZIDE. [Concomitant]
     Active Substance: HYDROCHLOROTHIAZIDE
     Indication: HYPERTENSION
     Dosage: 25 MG, 2X/DAY

REACTIONS (3)
  - Aneurysm ruptured [Fatal]
  - Drug interaction [Fatal]
  - Cerebral haemorrhage [Fatal]
